FAERS Safety Report 24344591 (Version 3)
Quarter: 2024Q4

REPORT INFORMATION
  Report Type: Spontaneous
  Country: JP (occurrence: JP)
  Receive Date: 20240920
  Receipt Date: 20241220
  Transmission Date: 20250114
  Serious: Yes (Other)
  Sender: AKEBIA THERAPEUTICS
  Company Number: JP-IQVIA-JT2024JP000370

PATIENT
  Age: 85 Year
  Sex: Female
  Weight: 39.8 kg

DRUGS (15)
  1. FERRIC CITRATE ANHYDROUS [Suspect]
     Active Substance: FERRIC CITRATE ANHYDROUS
     Indication: Iron deficiency anaemia
     Dosage: 250 MILLIGRAM, TID
     Route: 048
  2. FERRIC CITRATE ANHYDROUS [Suspect]
     Active Substance: FERRIC CITRATE ANHYDROUS
     Indication: Hyperphosphataemia
  3. ENARODUSTAT [Suspect]
     Active Substance: ENARODUSTAT
     Indication: Nephrogenic anaemia
     Dosage: 4 MILLIGRAM
     Route: 048
     Dates: start: 20240206
  4. ENARODUSTAT [Suspect]
     Active Substance: ENARODUSTAT
     Dosage: 2 MILLIGRAM
     Route: 048
     Dates: start: 20240312
  5. ENARODUSTAT [Suspect]
     Active Substance: ENARODUSTAT
     Dosage: 4 MILLIGRAM
     Route: 048
     Dates: start: 20240702
  6. ASPIRIN [Concomitant]
     Active Substance: ASPIRIN
     Indication: Prophylaxis
     Dosage: 100 MILLIGRAM, QD
     Route: 048
  7. LANSOPRAZOLE [Concomitant]
     Active Substance: LANSOPRAZOLE
     Indication: Gastrooesophageal reflux disease
     Dosage: 15 MILLIGRAM, QD
     Route: 048
  8. LINAGLIPTIN [Concomitant]
     Active Substance: LINAGLIPTIN
     Indication: Type 2 diabetes mellitus
     Dosage: 5 MILLIGRAM, QD
     Route: 048
  9. BISOPROLOL FUMARATE [Concomitant]
     Active Substance: BISOPROLOL FUMARATE
     Indication: Hypertension
     Dosage: 2.5 MILLIGRAM, QD
     Route: 048
  10. DOXAZOSIN MESYLATE [Concomitant]
     Active Substance: DOXAZOSIN MESYLATE
     Indication: Hypertension
     Dosage: 1 MILLIGRAM, QD
     Route: 048
  11. TELMISARTAN [Concomitant]
     Active Substance: TELMISARTAN
     Indication: Hypertension
     Dosage: 40 MILLIGRAM, QD, 4 TIMES/WK (MONDAY, WEDNESDAY, FRIDAY, SUNDAY)(NON-DIALYSIS DAYS)
     Route: 048
  12. AMLODIPINE BESYLATE [Concomitant]
     Active Substance: AMLODIPINE BESYLATE
     Indication: Hypertension
     Dosage: 5 MILLIGRAM, QD
     Route: 048
  13. IRON SUCROSE [Concomitant]
     Active Substance: IRON SUCROSE
     Indication: Nephrogenic anaemia
     Dosage: 40 MILLIGRAM
     Route: 042
  14. IRON SUCROSE [Concomitant]
     Active Substance: IRON SUCROSE
     Indication: Iron deficiency anaemia
  15. DROXIDOPA [Concomitant]
     Active Substance: DROXIDOPA
     Indication: Prophylaxis
     Dosage: 100 MILLIGRAM, 3 TIMES/WK
     Route: 048
     Dates: start: 20240409

REACTIONS (2)
  - Subclavian vein stenosis [Recovering/Resolving]
  - Dialysis hypotension [Recovering/Resolving]

NARRATIVE: CASE EVENT DATE: 20240409
